FAERS Safety Report 4492633-1 (Version None)
Quarter: 2004Q4

REPORT INFORMATION
  Report Type: 
  Country: None (occurrence: None)
  Receive Date: 20041029
  Receipt Date: 20041015
  Transmission Date: 20050328
  Serious: Yes (Hospitalization)
  Sender: FDA-Public Use
  Company Number: 2004RL000118

PATIENT
  Age: 65 Year
  Sex: Female

DRUGS (5)
  1. PROPAFENONE HCL [Suspect]
     Dosage: 2 DF; QD; PO
     Route: 048
     Dates: start: 20020126
  2. ENALAPRIL [Concomitant]
  3. ACEBUTOLOL [Concomitant]
  4. FUROSEMIDE [Concomitant]
  5. NITRITE DERIVED [Concomitant]

REACTIONS (9)
  - BUNDLE BRANCH BLOCK RIGHT [None]
  - CARDIAC FAILURE ACUTE [None]
  - CEREBROVASCULAR DISORDER [None]
  - CONDITION AGGRAVATED [None]
  - DIZZINESS [None]
  - LOSS OF CONSCIOUSNESS [None]
  - PULMONARY OEDEMA [None]
  - RENAL FAILURE ACUTE [None]
  - SINUS BRADYCARDIA [None]
